FAERS Safety Report 17078267 (Version 1)
Quarter: 2019Q4

REPORT INFORMATION
  Report Type: Report from Study
  Country: US (occurrence: US)
  Receive Date: 20191126
  Receipt Date: 20191126
  Transmission Date: 20200122
  Serious: Yes (Other)
  Sender: FDA-Public Use
  Company Number: US-BEH-2019109834

PATIENT
  Age: 40 Year
  Sex: Female
  Weight: 36.28 kg

DRUGS (2)
  1. HAEGARDA [Suspect]
     Active Substance: HUMAN C1-ESTERASE INHIBITOR
     Indication: PROPHYLAXIS
  2. HAEGARDA [Suspect]
     Active Substance: HUMAN C1-ESTERASE INHIBITOR
     Indication: HEREDITARY ANGIOEDEMA
     Dosage: 4800 INTERNATIONAL UNIT, BIW
     Route: 058
     Dates: start: 20171218

REACTIONS (2)
  - Knee arthroplasty [Unknown]
  - Dyspnoea [Unknown]
